FAERS Safety Report 6372982-2 (Version None)
Quarter: 2009Q3

REPORT INFORMATION
  Report Type: 
  Country: None (occurrence: None)
  Receive Date: 20090924
  Receipt Date: 20081215
  Transmission Date: 20100115
  Serious: No
  Sender: FDA-Public Use
  Company Number: US-ASTRAZENECA-2008UW27980

PATIENT
  Age: 53 Year
  Sex: Female
  Weight: 105.7 kg

DRUGS (9)
  1. SEROQUEL [Suspect]
     Indication: CONVULSION
     Dosage: UNKNOWN
     Route: 048
     Dates: start: 20050401, end: 20080401
  2. SEROQUEL [Suspect]
     Indication: AFFECTIVE DISORDER
     Dosage: UNKNOWN
     Route: 048
     Dates: start: 20050401, end: 20080401
  3. COGENTIN [Concomitant]
  4. ZYPREXA [Concomitant]
  5. LASIX [Concomitant]
  6. SPIRONOLACTONE [Concomitant]
  7. ULTRAM [Concomitant]
  8. ZANAFELX [Concomitant]
  9. IBUPROFEN [Concomitant]

REACTIONS (4)
  - DYSKINESIA [None]
  - LIP DISORDER [None]
  - MUSCLE TWITCHING [None]
  - TOOTH LOSS [None]
